FAERS Safety Report 10642346 (Version 1)
Quarter: 2014Q4

REPORT INFORMATION
  Report Type: Spontaneous
  Country: US (occurrence: None)
  Receive Date: 20141208
  Receipt Date: 20141208
  Transmission Date: 20150529
  Serious: Yes (Other)
  Sender: FDA-Public Use
  Company Number: None

PATIENT
  Age: 77 Year
  Sex: Male

DRUGS (1)
  1. CONRAY [Suspect]
     Active Substance: IOTHALAMATE MEGLUMINE
     Indication: SCAN WITH CONTRAST
     Route: 030
     Dates: start: 20141202, end: 20141202

REACTIONS (1)
  - Angioedema [None]

NARRATIVE: CASE EVENT DATE: 20141202
